FAERS Safety Report 10072665 (Version 2)
Quarter: 2014Q2

REPORT INFORMATION
  Report Type: Spontaneous
  Country: GB (occurrence: GB)
  Receive Date: 20140411
  Receipt Date: 20140515
  Transmission Date: 20141212
  Serious: Yes (Other)
  Sender: FDA-Public Use
  Company Number: GB-009507513-1404GBR003671

PATIENT
  Age: 30 Year
  Sex: Female

DRUGS (1)
  1. NEXPLANON [Suspect]
     Dosage: UNK
     Route: 059
     Dates: start: 20131107

REACTIONS (7)
  - Haemorrhage [Unknown]
  - Device difficult to use [Recovering/Resolving]
  - Ulnar nerve injury [Unknown]
  - Application site pain [Unknown]
  - Device deployment issue [Recovering/Resolving]
  - Device dislocation [Recovering/Resolving]
  - Implant site swelling [Unknown]
